FAERS Safety Report 15488297 (Version 1)
Quarter: 2018Q4

REPORT INFORMATION
  Report Type: Spontaneous
  Country: US (occurrence: US)
  Receive Date: 20181003
  Receipt Date: 20181003
  Transmission Date: 20190205
  Serious: Yes (Hospitalization)
  Sender: FDA-Public Use
  Company Number: None

PATIENT
  Age: 48 Year
  Sex: Female
  Weight: 74.84 kg

DRUGS (1)
  1. LISINOPRIL. [Suspect]
     Active Substance: LISINOPRIL
     Indication: HYPERTENSION
     Dosage: ?          OTHER FREQUENCY:ONCE;?
     Route: 048
     Dates: start: 20180828, end: 20180828

REACTIONS (6)
  - Hypotension [None]
  - Paraesthesia [None]
  - Abdominal pain [None]
  - Angioedema [None]
  - Diarrhoea [None]
  - Hypoaesthesia [None]

NARRATIVE: CASE EVENT DATE: 20180829
